FAERS Safety Report 13779632 (Version 2)
Quarter: 2017Q3

REPORT INFORMATION
  Report Type: Report from Study
  Country: US (occurrence: US)
  Receive Date: 20170722
  Receipt Date: 20170811
  Transmission Date: 20171127
  Serious: Yes (Death, Hospitalization, Other)
  Sender: FDA-Public Use
  Company Number: US-009507513-1707USA008495

PATIENT
  Age: 72 Year
  Sex: Male
  Weight: 81.63 kg

DRUGS (3)
  1. VELCADE [Suspect]
     Active Substance: BORTEZOMIB
     Indication: PLASMA CELL MYELOMA
     Dosage: 1.3 MG/M2, 1 X WEEK, DAY 1 Q 7 DAYS, 1 WEEK OFF Q 14 DAYS
     Route: 058
     Dates: start: 20160715, end: 20160930
  2. DECADRON [Suspect]
     Active Substance: DEXAMETHASONE
     Indication: PLASMA CELL MYELOMA
     Dosage: 40 MG, WEEKLY
     Route: 048
     Dates: start: 20160715, end: 20160930
  3. LYRICA [Concomitant]
     Active Substance: PREGABALIN

REACTIONS (2)
  - Plasma cell myeloma [Fatal]
  - Guillain-Barre syndrome [Unknown]

NARRATIVE: CASE EVENT DATE: 20170617
